FAERS Safety Report 12626030 (Version 1)
Quarter: 2016Q3

REPORT INFORMATION
  Report Type: Report from Study
  Country: US (occurrence: US)
  Receive Date: 20160805
  Receipt Date: 20160805
  Transmission Date: 20161109
  Serious: Yes (Other)
  Sender: FDA-Public Use
  Company Number: US-BAYER-2016-133965

PATIENT
  Age: 76 Year
  Sex: Female

DRUGS (3)
  1. STIVARGA [Suspect]
     Active Substance: REGORAFENIB
     Indication: APPENDIX CANCER
     Dosage: 120 MG, QD (3 TABLETS EVERY MORNING)
     Route: 048
     Dates: start: 20160629, end: 2016
  2. ONDANSETRON [Concomitant]
     Active Substance: ONDANSETRON
  3. LOPERAMIDE [Concomitant]
     Active Substance: LOPERAMIDE

REACTIONS (4)
  - Pain in extremity [Not Recovered/Not Resolved]
  - Abasia [Recovered/Resolved]
  - Off label use [None]
  - Stomatitis [Not Recovered/Not Resolved]

NARRATIVE: CASE EVENT DATE: 20160706
